FAERS Safety Report 8266649-3 (Version None)
Quarter: 2012Q2

REPORT INFORMATION
  Report Type: 
  Country: None (occurrence: None)
  Receive Date: 20120407
  Receipt Date: 20120327
  Transmission Date: 20120825
  Serious: Yes (Hospitalization, Other)
  Sender: FDA-Public Use
  Company Number: US-ASTRAZENECA-2010SE50829

PATIENT
  Age: 69 Year
  Sex: Female

DRUGS (9)
  1. CRESTOR [Suspect]
     Indication: BLOOD CHOLESTEROL INCREASED
     Route: 048
     Dates: start: 20030901
  2. RESTASIS [Concomitant]
  3. PULMICORT [Concomitant]
     Route: 055
  4. PREMARIN [Concomitant]
     Route: 067
  5. SYNTHROID [Concomitant]
  6. AVAPRO [Concomitant]
     Indication: HYPERTENSION
  7. ZOVIREX [Concomitant]
  8. CLIMARO PRO [Concomitant]
  9. FLONASE [Concomitant]
     Route: 045

REACTIONS (21)
  - KERATITIS [None]
  - ABDOMINAL HERNIA [None]
  - HYPERTENSION [None]
  - HYPOTHYROIDISM [None]
  - OSTEOPOROSIS [None]
  - MALAISE [None]
  - NECK INJURY [None]
  - NEPHROSCLEROSIS [None]
  - DIVERTICULUM [None]
  - OROPHARYNGEAL PAIN [None]
  - CONSTIPATION [None]
  - LIMB INJURY [None]
  - ORAL HERPES [None]
  - DIVERTICULITIS [None]
  - RENAL DISORDER [None]
  - BLOOD PARATHYROID HORMONE INCREASED [None]
  - AUTOIMMUNE THYROIDITIS [None]
  - CHOLECYSTITIS [None]
  - INGUINAL HERNIA [None]
  - GASTROOESOPHAGEAL REFLUX DISEASE [None]
  - ALLERGIC SINUSITIS [None]
